FAERS Safety Report 4281034-7 (Version None)
Quarter: 2004Q1

REPORT INFORMATION
  Report Type: 
  Country: None (occurrence: None)
  Receive Date: 20040129
  Receipt Date: 20030411
  Transmission Date: 20041129
  Serious: Yes (Other)
  Sender: FDA-Public Use
  Company Number: US-BRISTOL-MYERS SQUIBB COMPANY-12246328

PATIENT
  Age: 58 Year
  Sex: Female

DRUGS (1)
  1. CISPLATIN [Suspect]
     Indication: OVARIAN CANCER
     Dates: start: 20021101, end: 20021101

REACTIONS (1)
  - HYPERSENSITIVITY [None]
